FAERS Safety Report 9208308 (Version 1)
Quarter: 2013Q2

REPORT INFORMATION
  Report Type: Spontaneous
  Country: IT (occurrence: IT)
  Receive Date: 20130403
  Receipt Date: 20130403
  Transmission Date: 20140414
  Serious: Yes (Hospitalization)
  Sender: FDA-Public Use
  Company Number: IT-ALLERGAN-1304619US

PATIENT
  Age: 61 Year
  Sex: Female

DRUGS (5)
  1. TROSPIUM CHLORIDE [Suspect]
     Indication: INTENTIONAL SELF-INJURY
     Dosage: 15 DF, SINGLE
     Dates: start: 20130220, end: 20130220
  2. ACETYLSALICYLIC ACID [Suspect]
     Indication: INTENTIONAL SELF-INJURY
     Dosage: 10 DF, SINGLE
     Dates: start: 20130220, end: 20130220
  3. ABILIFY [Concomitant]
     Dosage: 10 MG, UNK
     Route: 048
  4. SIMVACOR [Concomitant]
     Dosage: 20 MG, UNK
     Route: 048
  5. SEACOR [Concomitant]
     Dosage: 1 G, UNK
     Route: 048

REACTIONS (6)
  - Agitation [Unknown]
  - Dry mouth [Unknown]
  - Mydriasis [Unknown]
  - Respiratory alkalosis [Unknown]
  - Dry mouth [Unknown]
  - Blood pressure systolic increased [None]
